FAERS Safety Report 20647524 (Version 4)
Quarter: 2023Q1

REPORT INFORMATION
  Report Type: Other
  Country: DE (occurrence: None)
  Receive Date: 20220329
  Receipt Date: 20230228
  Transmission Date: 20230418
  Serious: Yes (Other)
  Sender: FDA-Public Use
  Company Number: DE-ROCHE-2803396

PATIENT
  Age: 38 Year
  Sex: Female

DRUGS (3)
  1. OCREVUS [Suspect]
     Active Substance: OCRELIZUMAB
     Indication: Primary progressive multiple sclerosis
     Route: 042
     Dates: start: 20210208
  2. OCREVUS [Suspect]
     Active Substance: OCRELIZUMAB
     Route: 042
     Dates: start: 20210830
  3. TRAMADOL [Concomitant]
     Active Substance: TRAMADOL

REACTIONS (15)
  - Multiple sclerosis [Not Recovered/Not Resolved]
  - Pyelonephritis [Recovered/Resolved]
  - Multiple sclerosis [Not Recovered/Not Resolved]
  - Fatigue [Not Recovered/Not Resolved]
  - Cognitive disorder [Not Recovered/Not Resolved]
  - Gait inability [Not Recovered/Not Resolved]
  - Listless [Not Recovered/Not Resolved]
  - Fall [Unknown]
  - Skin abrasion [Recovered/Resolved]
  - Pain in extremity [Recovered/Resolved]
  - Neuralgia [Not Recovered/Not Resolved]
  - COVID-19 [Recovered/Resolved]
  - Nerve conduction studies abnormal [Not Recovered/Not Resolved]
  - Flank pain [Recovered/Resolved]
  - Fatigue [Recovered/Resolved]

NARRATIVE: CASE EVENT DATE: 20210208
